FAERS Safety Report 8261126-8 (Version None)
Quarter: 2012Q2

REPORT INFORMATION
  Report Type: 
  Country: None (occurrence: None)
  Receive Date: 20120405
  Receipt Date: 20120401
  Transmission Date: 20120825
  Serious: Yes (Other)
  Sender: FDA-Public Use
  Company Number: PHHY2012CL028685

PATIENT

DRUGS (1)
  1. GLEEVEC [Suspect]
     Dosage: 400 MG
     Dates: start: 20051001

REACTIONS (1)
  - PARALYSIS [None]
